FAERS Safety Report 8837606 (Version 4)
Quarter: 2014Q2

REPORT INFORMATION
  Report Type: Spontaneous
  Country: US (occurrence: US)
  Receive Date: 20121012
  Receipt Date: 20140626
  Transmission Date: 20141212
  Serious: Yes (Hospitalization, Disabling, Other)
  Sender: FDA-Public Use
  Company Number: US-009507513-1210USA004451

PATIENT
  Sex: Female
  Weight: 75.74 kg

DRUGS (3)
  1. FOSAMAX [Suspect]
     Indication: OSTEOPOROSIS
     Dosage: 70 MG, QW
     Route: 048
     Dates: start: 2002
  2. FOSAMAX PLUS D [Suspect]
     Indication: OSTEOPOROSIS
     Route: 048
  3. ALENDRONATE SODIUM [Suspect]
     Indication: OSTEOPOROSIS
     Dosage: 70 MG, UNK
     Route: 048
     Dates: start: 20100201, end: 20100603

REACTIONS (36)
  - Hip fracture [Not Recovered/Not Resolved]
  - Low turnover osteopathy [Not Recovered/Not Resolved]
  - Intramedullary rod insertion [Unknown]
  - Pathological fracture [Recovered/Resolved]
  - Intramedullary rod insertion [Recovered/Resolved]
  - Mastectomy [Unknown]
  - Colectomy [Unknown]
  - Renal failure acute [Recovered/Resolved]
  - Ovarian failure [Unknown]
  - Type 2 diabetes mellitus [Unknown]
  - Osteopenia [Unknown]
  - Bunion operation [Unknown]
  - Neurectomy [Unknown]
  - Hyperkeratosis [Unknown]
  - Foot deformity [Unknown]
  - Bone deformity [Unknown]
  - Hyperlipidaemia [Unknown]
  - Diverticulum [Unknown]
  - Asthma [Unknown]
  - Large intestinal polypectomy [Unknown]
  - Breast operation [Unknown]
  - Hyperkeratosis [Unknown]
  - Gastrointestinal disorder [Unknown]
  - Influenza [Unknown]
  - Cholelithiasis [Unknown]
  - Osteoarthritis [Unknown]
  - Arthritis [Unknown]
  - Hysterectomy [Unknown]
  - Oophorectomy [Unknown]
  - Knee operation [Unknown]
  - Injury [Unknown]
  - Joint crepitation [Unknown]
  - Hypertension [Unknown]
  - Blood glucose abnormal [Unknown]
  - Nausea [Unknown]
  - Arthralgia [Unknown]
